FAERS Safety Report 6370722-4 (Version None)
Quarter: 2009Q3

REPORT INFORMATION
  Report Type: 
  Country: None (occurrence: None)
  Receive Date: 20090923
  Receipt Date: 20070601
  Transmission Date: 20100115
  Serious: Yes (Other)
  Sender: FDA-Public Use
  Company Number: US-ASTRAZENECA-2006UW25273

PATIENT
  Age: 54 Year
  Sex: Male
  Weight: 74.4 kg

DRUGS (9)
  1. SEROQUEL [Suspect]
     Indication: DEPRESSION
     Dosage: 25 MG - 100 MG
     Route: 048
     Dates: start: 20030519
  2. SEROQUEL [Suspect]
     Route: 048
     Dates: start: 20030101, end: 20050101
  3. NAVANE [Concomitant]
  4. COBA [Concomitant]
  5. METHADONE [Concomitant]
     Dates: start: 20040422
  6. RISPERDAL [Concomitant]
     Dosage: 0.5 MG - 3 MG
     Dates: start: 19961011
  7. TRAZODONE [Concomitant]
     Route: 048
     Dates: start: 20040106
  8. ABILIFY [Concomitant]
     Dates: start: 20040802
  9. NEURONTIN [Concomitant]
     Route: 048
     Dates: start: 20030519

REACTIONS (3)
  - DIABETES MELLITUS [None]
  - GLUCOSE TOLERANCE IMPAIRED [None]
  - PANCREATITIS [None]
